FAERS Safety Report 19364254 (Version 1)
Quarter: 2021Q2

REPORT INFORMATION
  Report Type: Report from Study
  Country: US (occurrence: US)
  Receive Date: 20210603
  Receipt Date: 20210603
  Transmission Date: 20210717
  Serious: Yes (Other)
  Sender: FDA-Public Use
  Company Number: US-TEVA-2021-US-1918808

PATIENT
  Sex: Male

DRUGS (3)
  1. TOPOTECAN [Suspect]
     Active Substance: TOPOTECAN HYDROCHLORIDE
     Indication: RETINOBLASTOMA
     Dosage: 3 CYCLES, INTRA?ARTERIAL INFUSION TO OPHTHALMIC ARTERY
     Route: 050
  2. MELPHALAN. [Suspect]
     Active Substance: MELPHALAN
     Indication: RETINOBLASTOMA
     Dosage: 3 CYCLES, INTRA?ARTERIAL INFUSION TO OPHTHALMIC ARTERY
     Route: 050
  3. CARBOPLATIN. [Suspect]
     Active Substance: CARBOPLATIN
     Indication: RETINOBLASTOMA
     Dosage: 3 CYCLES, INTRA?ARTERIAL INFUSION TO OPHTHALMIC ARTERY
     Route: 050

REACTIONS (1)
  - Haematotoxicity [Unknown]
